FAERS Safety Report 16586702 (Version 1)
Quarter: 2019Q3

REPORT INFORMATION
  Report Type: Spontaneous
  Country: US (occurrence: US)
  Receive Date: 20190717
  Receipt Date: 20190717
  Transmission Date: 20191004
  Serious: No
  Sender: FDA-Public Use
  Company Number: US-JNJFOC-20190719115

PATIENT
  Age: 74 Year
  Sex: Male

DRUGS (11)
  1. VENETOCLAX. [Suspect]
     Active Substance: VENETOCLAX
     Indication: MANTLE CELL LYMPHOMA
     Dosage: 400 MG, QD
     Route: 065
     Dates: start: 20190116
  2. SILDENAFIL. [Concomitant]
     Active Substance: SILDENAFIL
  3. IMBRUVICA [Suspect]
     Active Substance: IBRUTINIB
     Indication: MANTLE CELL LYMPHOMA
     Dosage: 560 MG, QD
     Route: 065
     Dates: start: 20181224
  4. ALLOPURINOL. [Concomitant]
     Active Substance: ALLOPURINOL
  5. LOSARTAN. [Concomitant]
     Active Substance: LOSARTAN
  6. DILTIAZEM. [Concomitant]
     Active Substance: DILTIAZEM
  7. HCTZ [Concomitant]
     Active Substance: HYDROCHLOROTHIAZIDE
  8. OMEPRAZOLE. [Concomitant]
     Active Substance: OMEPRAZOLE
  9. ACYCLOVIR                          /00587301/ [Concomitant]
     Active Substance: ACYCLOVIR
  10. LORAZEPAM. [Concomitant]
     Active Substance: LORAZEPAM
  11. ASPIRIN                            /00002701/ [Concomitant]
     Active Substance: ASPIRIN

REACTIONS (4)
  - Eye pruritus [Unknown]
  - Visual impairment [Unknown]
  - Ocular hyperaemia [Unknown]
  - Cystoid macular oedema [Unknown]

NARRATIVE: CASE EVENT DATE: 201906
